FAERS Safety Report 18932232 (Version 1)
Quarter: 2021Q1

REPORT INFORMATION
  Report Type: Report from Study
  Country: CL (occurrence: CL)
  Receive Date: 20210224
  Receipt Date: 20210224
  Transmission Date: 20210420
  Serious: Yes (Other)
  Sender: FDA-Public Use
  Company Number: CL-JNJFOC-20210233847

PATIENT
  Age: 62 Year
  Sex: Female

DRUGS (2)
  1. METHOTREXATE. [Concomitant]
     Active Substance: METHOTREXATE
  2. SIMPONI [Suspect]
     Active Substance: GOLIMUMAB
     Indication: RHEUMATOID ARTHRITIS
     Route: 058
     Dates: start: 20191205

REACTIONS (6)
  - Dental restoration failure [Unknown]
  - Renal disorder [Unknown]
  - Memory impairment [Unknown]
  - Pyelonephritis [Unknown]
  - Product dose omission issue [Unknown]
  - Medication error [Unknown]

NARRATIVE: CASE EVENT DATE: 202012
